FAERS Safety Report 10260212 (Version 2)
Quarter: 2014Q2

REPORT INFORMATION
  Report Type: Spontaneous
  Country: US (occurrence: US)
  Receive Date: 20140625
  Receipt Date: 20140625
  Transmission Date: 20141212
  Serious: No
  Sender: FDA-Public Use
  Company Number: US-SANOFI-AVENTIS-2013SA048020

PATIENT
  Age: 30 Year
  Sex: Female
  Weight: 70.3 kg

DRUGS (25)
  1. AUBAGIO [Suspect]
     Indication: MULTIPLE SCLEROSIS
     Route: 048
     Dates: start: 20130409
  2. AUBAGIO [Suspect]
     Indication: MULTIPLE SCLEROSIS
     Route: 048
  3. IBUPROFEN [Concomitant]
     Indication: PAIN
  4. PROCARDIA [Concomitant]
     Indication: THROMBOANGIITIS OBLITERANS
  5. PROCARDIA [Concomitant]
     Indication: RAYNAUD^S PHENOMENON
  6. NEURONTIN [Concomitant]
     Indication: NEURALGIA
  7. BISACODYL [Concomitant]
     Indication: CONSTIPATION
  8. AMITIZA [Concomitant]
     Indication: IRRITABLE BOWEL SYNDROME
  9. BROMOCRIPTINE [Concomitant]
     Indication: HYPERPROLACTINAEMIA
  10. BACLOFEN [Concomitant]
     Indication: MUSCLE SPASMS
  11. BACTRIM [Concomitant]
     Indication: URINARY TRACT INFECTION
  12. ASA [Concomitant]
     Indication: THROMBOANGIITIS OBLITERANS
  13. ASA [Concomitant]
     Indication: RAYNAUD^S PHENOMENON
  14. SPIRONOLACTONE [Concomitant]
     Indication: POLYCYSTIC OVARIES
  15. DITROPAN XL [Concomitant]
     Indication: HYPERTONIC BLADDER
  16. METFORMIN [Concomitant]
     Indication: BLOOD TESTOSTERONE INCREASED
  17. PRILOSEC [Concomitant]
     Indication: GASTROOESOPHAGEAL REFLUX DISEASE
  18. VITAMIN D [Concomitant]
     Indication: VITAMIN D DEFICIENCY
     Dosage: DOSE:50000 UNIT(S)
  19. BACTROBAN [Concomitant]
     Indication: STAPHYLOCOCCAL INFECTION
  20. MECLIZINE HYDROCHLORIDE [Concomitant]
     Indication: DIZZINESS
  21. HYDROXYZINE HYDROCHLORIDE [Concomitant]
     Indication: PRURIGO
  22. MELATONIN [Concomitant]
     Indication: INSOMNIA
  23. PAXIL [Concomitant]
     Indication: DEPRESSION
     Dosage: 20 MG QAM 40MG QHS
  24. ALL OTHER THERAPEUTIC PRODUCTS [Concomitant]
     Indication: MULTIPLE ALLERGIES
     Dosage: 10/240MG
  25. ALL OTHER THERAPEUTIC PRODUCTS [Concomitant]
     Indication: MIDDLE EAR EFFUSION
     Dosage: 10/240MG

REACTIONS (6)
  - Fatigue [Not Recovered/Not Resolved]
  - Insomnia [Not Recovered/Not Resolved]
  - Sleep apnoea syndrome [Not Recovered/Not Resolved]
  - Alopecia [Not Recovered/Not Resolved]
  - Diarrhoea [Not Recovered/Not Resolved]
  - Drug dose omission [Unknown]
